FAERS Safety Report 8511233-7 (Version None)
Quarter: 2012Q3

REPORT INFORMATION
  Report Type: 
  Country: None (occurrence: None)
  Receive Date: 20120716
  Receipt Date: 20120710
  Transmission Date: 20120928
  Serious: Yes (Death, Hospitalization, Other)
  Sender: FDA-Public Use
  Company Number: PHHY2011FR07294

PATIENT
  Age: 47 Year
  Sex: Male

DRUGS (3)
  1. ISONIAZID [Suspect]
     Indication: PULMONARY TUBERCULOSIS
     Dosage: UNK
  2. RIFAMPICIN [Concomitant]
     Indication: TUBERCULOSIS
  3. ETHAMBUTOL HYDROCHLORIDE [Concomitant]
     Indication: TUBERCULOSIS
     Dosage: UNK

REACTIONS (8)
  - ACUTE HEPATIC FAILURE [None]
  - INTESTINAL OBSTRUCTION [None]
  - DISSEMINATED TUBERCULOSIS [None]
  - HEPATIC ENCEPHALOPATHY [None]
  - HEPATITIS [None]
  - GASTROINTESTINAL INJURY [None]
  - JAUNDICE [None]
  - DRUG RESISTANCE [None]
